FAERS Safety Report 16483336 (Version 1)
Quarter: 2019Q2

REPORT INFORMATION
  Report Type: Spontaneous
  Country: US (occurrence: US)
  Receive Date: 20190515
  Receipt Date: 20190515
  Transmission Date: 20190711
  Serious: Yes (Life-Threatening, Hospitalization)
  Sender: FDA-Public Use
  Company Number: None

PATIENT
  Age: 87 Year
  Sex: Male

DRUGS (1)
  1. APIXABAN [Suspect]
     Active Substance: APIXABAN
     Indication: ATRIAL FIBRILLATION
     Route: 048

REACTIONS (10)
  - Haemoglobin decreased [None]
  - Haematochezia [None]
  - Fall [None]
  - Upper gastrointestinal haemorrhage [None]
  - Hypotension [None]
  - Blood creatinine increased [None]
  - Dizziness [None]
  - Abnormal faeces [None]
  - Blood urea increased [None]
  - Haemorrhage [None]

NARRATIVE: CASE EVENT DATE: 20190227
